FAERS Safety Report 21888013 (Version 2)
Quarter: 2023Q1

REPORT INFORMATION
  Report Type: Spontaneous
  Country: US (occurrence: US)
  Receive Date: 20230120
  Receipt Date: 20230206
  Transmission Date: 20230418
  Serious: No
  Sender: FDA-Public Use
  Company Number: US-GLAXOSMITHKLINE-US2023AMR007432

PATIENT
  Sex: Female
  Weight: 56.689 kg

DRUGS (3)
  1. ZEJULA [Suspect]
     Active Substance: NIRAPARIB
     Indication: Meningioma malignant
     Dosage: 200 MG, QD
     Route: 048
     Dates: start: 20221230
  2. ZEJULA [Suspect]
     Active Substance: NIRAPARIB
     Indication: Mass
     Dosage: 200 MG, QD
     Route: 048
  3. ZEJULA [Suspect]
     Active Substance: NIRAPARIB
     Indication: Ovarian cancer

REACTIONS (6)
  - Nausea [Recovering/Resolving]
  - Fatigue [Unknown]
  - Heart rate increased [Unknown]
  - Platelet count decreased [Not Recovered/Not Resolved]
  - Somnolence [Unknown]
  - Constipation [Recovering/Resolving]
